FAERS Safety Report 7623288-2 (Version None)
Quarter: 2011Q3

REPORT INFORMATION
  Report Type: 
  Country: None (occurrence: None)
  Receive Date: 20110720
  Receipt Date: 20110714
  Transmission Date: 20111222
  Serious: Yes (Hospitalization, Other)
  Sender: FDA-Public Use
  Company Number: US-PFIZER INC-2011159777

PATIENT
  Sex: Female

DRUGS (2)
  1. AMIODARONE HCL [Suspect]
     Dosage: 200 MG, 1X/DAY
     Dates: end: 20100617
  2. DRONEDARONE HCL [Suspect]
     Indication: ATRIAL FIBRILLATION
     Dosage: 400 MG, 2X/DAY
     Route: 048
     Dates: start: 20100801

REACTIONS (11)
  - GOITRE [None]
  - GASTROINTESTINAL DISORDER [None]
  - EYE HAEMORRHAGE [None]
  - EMOTIONAL DISORDER [None]
  - ALOPECIA [None]
  - SUICIDAL IDEATION [None]
  - LIVER FUNCTION TEST ABNORMAL [None]
  - ECCHYMOSIS [None]
  - GLOSSODYNIA [None]
  - MALAISE [None]
  - CARDIAC FAILURE CONGESTIVE [None]
